FAERS Safety Report 20550873 (Version 2)
Quarter: 2022Q3

REPORT INFORMATION
  Report Type: Spontaneous
  Country: US (occurrence: US)
  Receive Date: 20220304
  Receipt Date: 20220815
  Transmission Date: 20221027
  Serious: Yes (Other)
  Sender: FDA-Public Use
  Company Number: US-JNJFOC-20220301469

PATIENT
  Age: 6 Decade
  Sex: Female

DRUGS (14)
  1. ELMIRON [Suspect]
     Active Substance: PENTOSAN POLYSULFATE SODIUM
     Indication: Cystitis interstitial
     Dosage: 200 TO 300 MG PER DAY
     Route: 048
     Dates: start: 2010, end: 201201
  2. ELMIRON [Suspect]
     Active Substance: PENTOSAN POLYSULFATE SODIUM
     Dosage: 200 TO 300 MG PER DAY
     Route: 048
     Dates: start: 20120217, end: 20181111
  3. HYDROXYZINE [Concomitant]
     Active Substance: HYDROXYZINE HYDROCHLORIDE
     Dates: start: 20120217, end: 20151114
  4. RANITIDINE [Concomitant]
     Active Substance: RANITIDINE
     Indication: Dyspepsia
     Dates: start: 20120316, end: 20120316
  5. RANITIDINE [Concomitant]
     Active Substance: RANITIDINE
     Dates: start: 20120523, end: 20130311
  6. RANITIDINE [Concomitant]
     Active Substance: RANITIDINE
     Dates: start: 20130521, end: 20130521
  7. RANITIDINE [Concomitant]
     Active Substance: RANITIDINE
     Dates: start: 20130723, end: 20131021
  8. RANITIDINE [Concomitant]
     Active Substance: RANITIDINE
     Dates: start: 20140211, end: 20140509
  9. RANITIDINE [Concomitant]
     Active Substance: RANITIDINE
     Dates: start: 20150205, end: 20151030
  10. RANITIDINE [Concomitant]
     Active Substance: RANITIDINE
     Dates: start: 20170518, end: 20170518
  11. RANITIDINE [Concomitant]
     Active Substance: RANITIDINE
     Dates: start: 20170609, end: 20170824
  12. RANITIDINE [Concomitant]
     Active Substance: RANITIDINE
     Dates: start: 20171122, end: 20180519
  13. RANITIDINE [Concomitant]
     Active Substance: RANITIDINE
     Dates: start: 20180817, end: 20181111
  14. ENALAPRIL [Concomitant]
     Active Substance: ENALAPRIL
     Dates: start: 20120105, end: 20201210

REACTIONS (4)
  - Neovascular age-related macular degeneration [Not Recovered/Not Resolved]
  - Dry age-related macular degeneration [Not Recovered/Not Resolved]
  - Maculopathy [Unknown]
  - Off label use [Unknown]

NARRATIVE: CASE EVENT DATE: 20100101
